FAERS Safety Report 8597080-9 (Version None)
Quarter: 2012Q3

REPORT INFORMATION
  Report Type: 
  Country: None (occurrence: None)
  Receive Date: 20120816
  Receipt Date: 20120808
  Transmission Date: 20120928
  Serious: Yes (Hospitalization, Other)
  Sender: FDA-Public Use
  Company Number: US-BIOGENIDEC-2011BI011334

PATIENT
  Age: 64 Year
  Sex: Female

DRUGS (3)
  1. INTERFERON BETA-1A [Suspect]
     Route: 030
     Dates: start: 20120201, end: 20120701
  2. INTERFERON BETA-1A [Suspect]
     Indication: MULTIPLE SCLEROSIS
     Route: 030
     Dates: start: 20041130, end: 20100203
  3. INTERFERON BETA-1A [Suspect]
     Route: 030

REACTIONS (5)
  - SMALL CELL LUNG CANCER METASTATIC [None]
  - GASTROINTESTINAL TUBE INSERTION [None]
  - URINARY TRACT INFECTION [None]
  - CEREBROVASCULAR ACCIDENT [None]
  - DYSPNOEA [None]
